FAERS Safety Report 23317535 (Version 4)
Quarter: 2025Q4

REPORT INFORMATION
  Report Type: Spontaneous
  Country: US (occurrence: US)
  Receive Date: 20231219
  Receipt Date: 20251231
  Transmission Date: 20260117
  Serious: Yes (Hospitalization)
  Sender: ROCHE
  Company Number: US-ROCHE-3403929

PATIENT
  Age: 12 Year
  Sex: Male

DRUGS (2)
  1. HEMLIBRA [Suspect]
     Active Substance: EMICIZUMAB-KXWH
     Indication: Factor VIII deficiency
     Dosage: STRENGTH-60MG/0.4ML
     Route: 058
     Dates: start: 202305
  2. HEMLIBRA [Suspect]
     Active Substance: EMICIZUMAB-KXWH
     Dosage: STRENGTH: 105 MG/ 0.7 ML
     Route: 058
     Dates: start: 202305

REACTIONS (3)
  - Haemorrhage [Unknown]
  - Haemorrhage [Unknown]
  - Haemorrhage [Unknown]

NARRATIVE: CASE EVENT DATE: 20230720
